FAERS Safety Report 8404885-3 (Version None)
Quarter: 2012Q2

REPORT INFORMATION
  Report Type: 
  Country: None (occurrence: None)
  Receive Date: 20120601
  Receipt Date: 20111130
  Transmission Date: 20120825
  Serious: No
  Sender: FDA-Public Use
  Company Number: US-ASTRAZENECA-2011SE72785

PATIENT
  Age: 50 Year
  Sex: Female

DRUGS (2)
  1. ATACAND HCT [Suspect]
     Route: 048
  2. NEXIUM [Concomitant]

REACTIONS (2)
  - HYPERTENSION [None]
  - DRUG DOSE OMISSION [None]
